FAERS Safety Report 23186249 (Version 1)
Quarter: 2023Q4

REPORT INFORMATION
  Report Type: Spontaneous
  Country: US (occurrence: None)
  Receive Date: 20231114
  Receipt Date: 20231114
  Transmission Date: 20240110
  Serious: Yes (Hospitalization, Disabling, Other)
  Sender: FDA-Public Use
  Company Number: None

PATIENT
  Age: 78 Year
  Sex: Female
  Weight: 137 kg

DRUGS (13)
  1. ALDARA [Suspect]
     Active Substance: IMIQUIMOD
     Indication: Skin cancer
     Dosage: OTHER QUANTITY : OTHER;?FREQUENCY : AT BEDTIME;?APPLIED TO A SURFACE, USUALL THE SKIN?
     Route: 061
     Dates: start: 20230616, end: 20230624
  2. HUMALOG [Concomitant]
     Active Substance: INSULIN LISPRO
  3. LANTUS [Concomitant]
     Active Substance: INSULIN GLARGINE
  4. LOSARTAN [Concomitant]
     Active Substance: LOSARTAN
  5. SIMVASTATIN [Concomitant]
     Active Substance: SIMVASTATIN
  6. LEVOTHYROXINE [Concomitant]
     Active Substance: LEVOTHYROXINE
  7. AMLODIPINE [Concomitant]
     Active Substance: AMLODIPINE BESYLATE
  8. PREDNISONE [Concomitant]
     Active Substance: PREDNISONE
  9. ACTEMRA [Concomitant]
     Active Substance: TOCILIZUMAB
  10. PANTOPRAZOLE [Concomitant]
     Active Substance: PANTOPRAZOLE
  11. SULFAMETHOXAZOLE\TRIMETHOPRIM [Concomitant]
     Active Substance: SULFAMETHOXAZOLE\TRIMETHOPRIM
  12. ASPIRIN [Concomitant]
     Active Substance: ASPIRIN
  13. VITAMIN D3 [Concomitant]
     Active Substance: CHOLECALCIFEROL

REACTIONS (12)
  - Neck pain [None]
  - Pain in jaw [None]
  - Eye pain [None]
  - Asthenia [None]
  - Dizziness [None]
  - Hypophagia [None]
  - Gait inability [None]
  - Blood glucose increased [None]
  - Therapy cessation [None]
  - Diplopia [None]
  - Blindness [None]
  - Giant cell arteritis [None]

NARRATIVE: CASE EVENT DATE: 20230616
